FAERS Safety Report 14686589 (Version 2)
Quarter: 2018Q2

REPORT INFORMATION
  Report Type: Report from Study
  Country: JP (occurrence: JP)
  Receive Date: 20180327
  Receipt Date: 20180418
  Transmission Date: 20180711
  Serious: Yes (Other)
  Sender: FDA-Public Use
  Company Number: JP-SA-2018SA090045

PATIENT
  Age: 60 Year

DRUGS (2)
  1. FILGRASTIM [Concomitant]
     Active Substance: FILGRASTIM
     Indication: LYMPHOMA
     Route: 058
  2. PLERIXAFOR [Suspect]
     Active Substance: PLERIXAFOR
     Indication: LYMPHOMA
     Route: 065

REACTIONS (1)
  - Febrile neutropenia [Unknown]
